FAERS Safety Report 13307835 (Version 1)
Quarter: 2017Q1

REPORT INFORMATION
  Report Type: Spontaneous
  Country: US (occurrence: US)
  Receive Date: 20170308
  Receipt Date: 20170308
  Transmission Date: 20170428
  Serious: No
  Sender: FDA-Public Use
  Company Number: US-TEIKOKU PHARMA USA-TPU2017-00083

PATIENT
  Sex: Female
  Weight: 80.81 kg

DRUGS (6)
  1. INJECTIONS [Concomitant]
     Indication: INTERVERTEBRAL DISC DEGENERATION
  2. ALDACTAZIDE/HCTZ [Concomitant]
     Indication: BLOOD PRESSURE MEASUREMENT
     Dosage: 25/25MG
  3. ALDACTAZIDE/HCTZ [Concomitant]
     Dosage: 25/25MG
  4. LIDOCAINE PATCH [Suspect]
     Active Substance: LIDOCAINE
     Indication: INTERVERTEBRAL DISC DEGENERATION
     Dosage: APPLIES TO EITHER SIDES OF SHOULDERS AND LOWER BACK
     Route: 061
     Dates: start: 2013
  5. VESICARE [Concomitant]
     Active Substance: SOLIFENACIN SUCCINATE
     Indication: BLADDER DISORDER
     Dates: start: 2013
  6. SIMVASTATIN. [Concomitant]
     Active Substance: SIMVASTATIN
     Indication: BLOOD CHOLESTEROL INCREASED
     Dates: start: 2007

REACTIONS (1)
  - Body height decreased [Not Recovered/Not Resolved]
